FAERS Safety Report 6576370-5 (Version None)
Quarter: 2010Q1

REPORT INFORMATION
  Report Type: 
  Country: None (occurrence: None)
  Receive Date: 20100210
  Receipt Date: 20100205
  Transmission Date: 20100710
  Serious: Yes (Other)
  Sender: FDA-Public Use
  Company Number: US-JNJFOC-20091103139

PATIENT
  Sex: Female
  Weight: 76.66 kg

DRUGS (8)
  1. LEVAQUIN [Suspect]
     Indication: LOCALISED INFECTION
     Route: 048
     Dates: start: 20091029, end: 20091107
  2. COUMADIN [Concomitant]
     Indication: ANTICOAGULANT THERAPY
     Route: 048
  3. SPIRIVA [Concomitant]
     Indication: CHRONIC OBSTRUCTIVE PULMONARY DISEASE
     Route: 065
  4. CARTAL [Concomitant]
     Indication: CARDIAC DISORDER
     Route: 065
  5. SOTALOL [Concomitant]
     Indication: CARDIAC DISORDER
     Route: 048
  6. LANOXIN [Concomitant]
     Indication: CARDIAC DISORDER
     Route: 048
  7. LEVOTHYROXINE SODIUM [Concomitant]
     Indication: HYPOTHYROIDISM
     Route: 048
  8. LIPITOR [Concomitant]
     Indication: BLOOD CHOLESTEROL
     Route: 048

REACTIONS (5)
  - BLOOD PRESSURE FLUCTUATION [None]
  - COUGH [None]
  - HEADACHE [None]
  - TENDONITIS [None]
  - TINNITUS [None]
